FAERS Safety Report 6163696-2 (Version None)
Quarter: 2009Q2

REPORT INFORMATION
  Report Type: 
  Country: None (occurrence: None)
  Receive Date: 20090420
  Receipt Date: 20090317
  Transmission Date: 20091009
  Serious: Yes (Other)
  Sender: FDA-Public Use
  Company Number: SPV1-2009-00200

PATIENT
  Age: 38 Year
  Sex: Female
  Weight: 45.8 kg

DRUGS (3)
  1. LIALDA [Suspect]
     Indication: COLITIS ULCERATIVE
     Dosage: 2.4 G, 1X/DAY:QD, ORAL : 2.4 G, ONE DOSE, ORAL
     Route: 048
     Dates: start: 20090123, end: 20090130
  2. LIALDA [Suspect]
     Indication: COLITIS ULCERATIVE
     Dosage: 2.4 G, 1X/DAY:QD, ORAL : 2.4 G, ONE DOSE, ORAL
     Route: 048
     Dates: start: 20090203, end: 20090203
  3. ROWASA [Concomitant]

REACTIONS (3)
  - MYALGIA [None]
  - PAIN IN EXTREMITY [None]
  - PYREXIA [None]
